FAERS Safety Report 14443781 (Version 2)
Quarter: 2018Q1

REPORT INFORMATION
  Report Type: Spontaneous
  Country: US (occurrence: US)
  Receive Date: 20180125
  Receipt Date: 20180131
  Transmission Date: 20180509
  Serious: Yes (Hospitalization, Other)
  Sender: FDA-Public Use
  Company Number: US-GILEAD-2018-0317315

PATIENT
  Age: 37 Year
  Sex: Male

DRUGS (1)
  1. TRUVADA [Suspect]
     Active Substance: EMTRICITABINE\TENOFOVIR DISOPROXIL FUMARATE
     Indication: PROPHYLAXIS AGAINST HIV INFECTION
     Dosage: UNK
     Route: 065
     Dates: start: 2015, end: 201801

REACTIONS (8)
  - Visual impairment [Unknown]
  - Tachycardia [Unknown]
  - Blood cholesterol increased [Unknown]
  - Amnesia [Unknown]
  - Sensory loss [Unknown]
  - Weight decreased [Unknown]
  - Lyme disease [Unknown]
  - Pain in extremity [Unknown]
